FAERS Safety Report 7951200-5 (Version None)
Quarter: 2011Q4

REPORT INFORMATION
  Report Type: 
  Country: None (occurrence: None)
  Receive Date: 20111128
  Receipt Date: 20111111
  Transmission Date: 20120403
  Serious: Yes (Hospitalization)
  Sender: FDA-Public Use
  Company Number: 019663

PATIENT
  Age: 53 Year
  Sex: Female
  Weight: 62 kg

DRUGS (10)
  1. ACTOS [Concomitant]
  2. LEVOFLOXACIN [Concomitant]
  3. LOSARTAN POTASSIUM [Concomitant]
  4. PEGAPTANIB SODIUM; PLACEBO (PEGAPTANIB SODIUM) UNKNOWN [Suspect]
     Indication: DIABETIC RETINAL OEDEMA
     Dosage: 0.3 MG IN THE RIGHT EYE
     Dates: start: 20110812, end: 20110812
  5. GLUCOBAY [Concomitant]
  6. BRONUCK (BROMFENAC SODIUM) [Concomitant]
  7. AMARYL [Concomitant]
  8. RADEN (RANITIDINE HYDROCHLORIDE) [Concomitant]
  9. LIVALO (ITAVASTATIN) [Concomitant]
  10. FLUOROMETHOLONE [Concomitant]

REACTIONS (3)
  - OCULAR HYPERTENSION [None]
  - SUDDEN HEARING LOSS [None]
  - HYPHAEMA [None]
